FAERS Safety Report 20595582 (Version 1)
Quarter: 2022Q1

REPORT INFORMATION
  Report Type: Report from Study
  Country: US (occurrence: US)
  Receive Date: 20220315
  Receipt Date: 20220315
  Transmission Date: 20220424
  Serious: Yes (Hospitalization, Other)
  Sender: FDA-Public Use
  Company Number: US-SHIRE-US202009077

PATIENT
  Age: 69 Year
  Sex: Female
  Weight: 62 kg

DRUGS (20)
  1. TEDUGLUTIDE [Suspect]
     Active Substance: TEDUGLUTIDE
     Indication: Short-bowel syndrome
     Dosage: 3.14 MILLIGRAM, QD
     Route: 065
     Dates: start: 20190209, end: 20190909
  2. TEDUGLUTIDE [Suspect]
     Active Substance: TEDUGLUTIDE
     Indication: Short-bowel syndrome
     Dosage: 3.14 MILLIGRAM, QD
     Route: 065
     Dates: start: 20190209, end: 20190909
  3. TEDUGLUTIDE [Suspect]
     Active Substance: TEDUGLUTIDE
     Indication: Short-bowel syndrome
     Dosage: 3.14 MILLIGRAM, QD
     Route: 065
     Dates: start: 20190209, end: 20190909
  4. TEDUGLUTIDE [Suspect]
     Active Substance: TEDUGLUTIDE
     Indication: Short-bowel syndrome
     Dosage: 3.14 MILLIGRAM, QD
     Route: 065
     Dates: start: 20190209, end: 20190909
  5. TEDUGLUTIDE [Suspect]
     Active Substance: TEDUGLUTIDE
     Dosage: 3.14 MILLIGRAM, 4/WEEK
     Route: 065
     Dates: start: 20190910, end: 202003
  6. TEDUGLUTIDE [Suspect]
     Active Substance: TEDUGLUTIDE
     Dosage: 3.14 MILLIGRAM, 4/WEEK
     Route: 065
     Dates: start: 20190910, end: 202003
  7. TEDUGLUTIDE [Suspect]
     Active Substance: TEDUGLUTIDE
     Dosage: 3.14 MILLIGRAM, 4/WEEK
     Route: 065
     Dates: start: 20190910, end: 202003
  8. TEDUGLUTIDE [Suspect]
     Active Substance: TEDUGLUTIDE
     Dosage: 3.14 MILLIGRAM, 4/WEEK
     Route: 065
     Dates: start: 20190910, end: 202003
  9. TEDUGLUTIDE [Suspect]
     Active Substance: TEDUGLUTIDE
     Dosage: 3.140 MILLIGRAM
     Route: 065
     Dates: start: 20200501, end: 20210209
  10. TEDUGLUTIDE [Suspect]
     Active Substance: TEDUGLUTIDE
     Dosage: 3.140 MILLIGRAM
     Route: 065
     Dates: start: 20200501, end: 20210209
  11. TEDUGLUTIDE [Suspect]
     Active Substance: TEDUGLUTIDE
     Dosage: 3.140 MILLIGRAM
     Route: 065
     Dates: start: 20200501, end: 20210209
  12. TEDUGLUTIDE [Suspect]
     Active Substance: TEDUGLUTIDE
     Dosage: 3.140 MILLIGRAM
     Route: 065
     Dates: start: 20200501, end: 20210209
  13. LEVOFLOXACIN [Concomitant]
     Active Substance: LEVOFLOXACIN
     Indication: Bacteraemia
     Route: 065
  14. CEFEPIME [Concomitant]
     Active Substance: CEFEPIME HYDROCHLORIDE
     Indication: Sepsis
     Route: 065
  15. ZOSYN [Concomitant]
     Active Substance: PIPERACILLIN SODIUM\TAZOBACTAM SODIUM
     Indication: Sepsis
     Route: 065
  16. LEVOTHYROXINE [Concomitant]
     Active Substance: LEVOTHYROXINE
     Indication: Short-bowel syndrome
     Route: 065
  17. MINERALS\VITAMINS [Concomitant]
     Active Substance: MINERALS\VITAMINS
     Indication: Short-bowel syndrome
     Dosage: UNK
     Route: 048
  18. LISINOPRIL [Concomitant]
     Active Substance: LISINOPRIL
     Indication: Hypertension
     Dosage: 10 MILLIGRAM, QD
     Route: 048
     Dates: start: 20171106
  19. PRILOSEC [Concomitant]
     Active Substance: OMEPRAZOLE MAGNESIUM
     Indication: Gastrooesophageal reflux disease
     Dosage: 20 MILLIGRAM, BID
     Route: 048
     Dates: start: 20160926
  20. SODIUM POTASSIUM MAGNESIUM CALCIUM AND GLUCOSE [Concomitant]
     Indication: Short-bowel syndrome
     Dosage: 35205 MILLIEQUIVALENT
     Route: 042
     Dates: start: 20160627

REACTIONS (3)
  - Device related bacteraemia [Recovered/Resolved]
  - Muscle spasms [Recovered/Resolved]
  - Diarrhoea [Recovered/Resolved]

NARRATIVE: CASE EVENT DATE: 20200201
